FAERS Safety Report 9374481 (Version 1)
Quarter: 2013Q2

REPORT INFORMATION
  Report Type: Spontaneous
  Country: CN (occurrence: CN)
  Receive Date: 20130628
  Receipt Date: 20130628
  Transmission Date: 20140414
  Serious: Yes (Other)
  Sender: FDA-Public Use
  Company Number: CN-ABBOTT-13X-035-1107941-00

PATIENT
  Age: 67 Year
  Sex: Male
  Weight: 51 kg

DRUGS (1)
  1. TERAZOSIN HCL [Suspect]
     Indication: BENIGN PROSTATIC HYPERPLASIA
     Route: 048
     Dates: start: 20121009, end: 20121020

REACTIONS (9)
  - Asphyxia [Recovering/Resolving]
  - Amaurosis [Recovered/Resolved]
  - Amaurosis [Recovering/Resolving]
  - Fall [Recovered/Resolved]
  - Orthostatic hypotension [Recovering/Resolving]
  - Syncope [Recovering/Resolving]
  - Dizziness [Recovered/Resolved]
  - Dizziness [Recovering/Resolving]
  - Chest discomfort [Recovered/Resolved]
